FAERS Safety Report 4395938-8 (Version None)
Quarter: 2004Q3

REPORT INFORMATION
  Report Type: 
  Country: None (occurrence: None)
  Receive Date: 20040709
  Receipt Date: 20040630
  Transmission Date: 20050211
  Serious: Yes (Hospitalization)
  Sender: FDA-Public Use
  Company Number: 207226

PATIENT
  Age: 21 Year
  Sex: Female
  Weight: 74.8 kg

DRUGS (12)
  1. XOLAIR [Suspect]
     Indication: ASTHMA
     Dosage: 150 MG, Q2W, SUBCUTANEOUS
     Route: 058
     Dates: start: 20040301
  2. ACTONEL [Suspect]
     Dosage: 35 MG, 1/WEEK, ORAL
     Route: 048
     Dates: start: 20040607
  3. STEROIDS NOS (STEROID NOS) [Concomitant]
  4. ADVAIR (SALMETEROL, XINAFOATE, FLUTICASONE PROPIONATE) [Concomitant]
  5. PULMICORT [Concomitant]
  6. FLONASE [Concomitant]
  7. ALLEGRA [Concomitant]
  8. ALBUTEROL INHALER (ALBUTEROL SULFATE, ALBUTEROL) [Concomitant]
  9. DARVOCET [Concomitant]
  10. NEURONTIN [Concomitant]
  11. SOMA [Concomitant]
  12. SKELAXIN [Concomitant]

REACTIONS (7)
  - ACINETOBACTER INFECTION [None]
  - DISEASE RECURRENCE [None]
  - DRUG INTOLERANCE [None]
  - HERPES SIMPLEX [None]
  - HYPERSENSITIVITY [None]
  - NAUSEA [None]
  - VOMITING [None]
